FAERS Safety Report 5892433-1 (Version None)
Quarter: 2008Q3

REPORT INFORMATION
  Report Type: 
  Country: None (occurrence: None)
  Receive Date: 20080923
  Receipt Date: 20080917
  Transmission Date: 20090109
  Serious: Yes (Death)
  Sender: FDA-Public Use
  Company Number: IL-JNJFOC-20080803466

PATIENT
  Sex: Female
  Weight: 57 kg

DRUGS (13)
  1. DOXIL [Suspect]
     Indication: MYCOSIS FUNGOIDES
     Route: 042
  2. DEXAMETHASONE [Concomitant]
     Indication: ANTIEMETIC SUPPORTIVE CARE
     Route: 042
  3. TRAMADOL HCL [Concomitant]
     Indication: PAIN
     Route: 065
  4. CIPRALEX [Concomitant]
     Indication: DEPRESSION
     Route: 065
  5. CIPRALEX [Concomitant]
     Indication: ADJUSTMENT DISORDER
     Route: 065
  6. METOCLOPRAMIDE [Concomitant]
     Indication: NAUSEA
     Route: 042
  7. MORPHINE [Concomitant]
     Indication: CANCER PAIN
     Route: 058
  8. IKACOR [Concomitant]
     Indication: SUPRAVENTRICULAR TACHYCARDIA
     Route: 042
  9. IKACOR [Concomitant]
     Route: 065
  10. CLONEX [Concomitant]
     Indication: INSOMNIA
     Route: 065
  11. FUSID [Concomitant]
     Indication: OEDEMA PERIPHERAL
     Route: 065
  12. OPTALGIN [Concomitant]
     Indication: PAIN
     Dosage: 3CC GIVEN
     Route: 065
  13. OXYCOD [Concomitant]
     Indication: PAIN
     Dosage: 3CC GIVEN
     Route: 065

REACTIONS (1)
  - MYOCARDIAL INFARCTION [None]
